FAERS Safety Report 4299204-0 (Version None)
Quarter: 2004Q1

REPORT INFORMATION
  Report Type: 
  Country: None (occurrence: None)
  Receive Date: 20040217
  Receipt Date: 20040210
  Transmission Date: 20041129
  Serious: Yes (Hospitalization)
  Sender: FDA-Public Use
  Company Number: US-JNJFOC-20031103959

PATIENT
  Age: 67 Year
  Sex: Female
  Weight: 181.4388 kg

DRUGS (7)
  1. ULTRACET [Suspect]
     Indication: DIABETIC COMPLICATION
     Dates: start: 20021012, end: 20031001
  2. ULTRACET [Suspect]
     Indication: OSTEOARTHRITIS
     Dates: start: 20021012, end: 20031001
  3. ULTRAM [Suspect]
     Indication: DIABETIC COMPLICATION
     Dates: start: 20030401
  4. INSULIN [Concomitant]
  5. GLUCOPHAGE [Concomitant]
  6. COUMADIN [Concomitant]
  7. NERVE PILL (ALL OTHER THERAPEUTIC PRODUCTS) [Concomitant]

REACTIONS (5)
  - CONVULSION [None]
  - DELUSION [None]
  - DIARRHOEA [None]
  - MENTAL STATUS CHANGES [None]
  - PERSONALITY CHANGE [None]
